FAERS Safety Report 4375299-0 (Version None)
Quarter: 2004Q2

REPORT INFORMATION
  Report Type: 
  Country: None (occurrence: None)
  Receive Date: 20040608
  Receipt Date: 20040603
  Transmission Date: 20050107
  Serious: Yes (Death, Hospitalization)
  Sender: FDA-Public Use
  Company Number: 7291

PATIENT
  Age: 53 Year
  Sex: Male

DRUGS (8)
  1. BLEOMYCIN [Suspect]
     Indication: HODGKIN'S DISEASE
     Dosage: 18500 UNITS FORTNIGHTLY; IV
     Route: 042
     Dates: start: 20030620, end: 20031128
  2. NEBIVOLOL [Concomitant]
  3. VINBLASTINE SULFATE [Concomitant]
  4. DOXORUBICIN HCL [Concomitant]
  5. DACARBAZINE [Concomitant]
  6. DEXAMETHASONE [Concomitant]
  7. GRANISETRON [Concomitant]
  8. AMIODARONE HCL [Concomitant]

REACTIONS (5)
  - ACUTE RESPIRATORY DISTRESS SYNDROME [None]
  - DRUG HYPERSENSITIVITY [None]
  - IDIOSYNCRATIC DRUG REACTION [None]
  - PULMONARY FIBROSIS [None]
  - RESPIRATORY FAILURE [None]
